FAERS Safety Report 19622123 (Version 1)
Quarter: 2021Q3

REPORT INFORMATION
  Report Type: Spontaneous
  Country: US (occurrence: US)
  Receive Date: 20210728
  Receipt Date: 20210728
  Transmission Date: 20211014
  Serious: No
  Sender: FDA-Public Use
  Company Number: US-GLAXOSMITHKLINE-US2021158665

PATIENT
  Sex: Female

DRUGS (1)
  1. FLONASE ALLERGY RELIEF [Suspect]
     Active Substance: FLUTICASONE PROPIONATE
     Indication: HYPERSENSITIVITY
     Dosage: UNK (ONCE OR TWICE A WEEK)
     Dates: end: 20210721

REACTIONS (4)
  - Migraine [Unknown]
  - Vision blurred [Unknown]
  - Photopsia [Unknown]
  - Insomnia [Unknown]
